FAERS Safety Report 15350747 (Version 1)
Quarter: 2018Q3

REPORT INFORMATION
  Report Type: Spontaneous
  Country: JP (occurrence: JP)
  Receive Date: 20180905
  Receipt Date: 20180905
  Transmission Date: 20181010
  Serious: Yes (Hospitalization, Other)
  Sender: FDA-Public Use
  Company Number: JP-ROCHE-2179977

PATIENT
  Age: 8 Decade
  Sex: Female

DRUGS (1)
  1. XELODA [Suspect]
     Active Substance: CAPECITABINE
     Indication: RECTAL CANCER
     Dosage: DOSAGE IS UNCERTAIN.
     Route: 048
     Dates: start: 20180723

REACTIONS (4)
  - Malignant ascites [Unknown]
  - Nausea [Unknown]
  - Incorrect drug administration duration [Unknown]
  - Vomiting [Unknown]

NARRATIVE: CASE EVENT DATE: 20180725
